FAERS Safety Report 7791824-1 (Version None)
Quarter: 2011Q4

REPORT INFORMATION
  Report Type: 
  Country: None (occurrence: None)
  Receive Date: 20111003
  Receipt Date: 20110926
  Transmission Date: 20120403
  Serious: No
  Sender: FDA-Public Use
  Company Number: US-PFIZER INC-2011230107

PATIENT
  Sex: Male
  Weight: 58.957 kg

DRUGS (4)
  1. IBUPROFEN (ADVIL) [Suspect]
     Indication: PROSTATITIS
     Dosage: 200 MG, AS NEEDED
     Dates: start: 19910101
  2. ZOCOR [Concomitant]
     Indication: BLOOD CHOLESTEROL INCREASED
     Dosage: 10 MG, DAILY
  3. TAMSULOSIN HYDROCHLORIDE [Concomitant]
     Indication: PROSTATITIS
     Dosage: 01 MG, DAILY
  4. IBUPROFEN (ADVIL) [Suspect]
     Indication: CYSTITIS NONINFECTIVE

REACTIONS (2)
  - WEIGHT DECREASED [None]
  - DIZZINESS [None]
